FAERS Safety Report 4977511-3 (Version None)
Quarter: 2006Q2

REPORT INFORMATION
  Report Type: 
  Country: None (occurrence: None)
  Receive Date: 20060420
  Receipt Date: 20060411
  Transmission Date: 20061013
  Serious: Yes (Hospitalization)
  Sender: FDA-Public Use
  Company Number: FR-ABBOTT-06P-056-0330715-00

PATIENT
  Age: 42 Year
  Sex: Male

DRUGS (3)
  1. RITONAVIR SOFT GELATIN CAPSULES [Suspect]
     Indication: HIV INFECTION
     Route: 048
     Dates: start: 20060201, end: 20060201
  2. APTIVUS [Suspect]
     Indication: HIV INFECTION
     Route: 048
     Dates: start: 20060201, end: 20060201
  3. ANTIRETROVIRAL DRUGS [Concomitant]
     Indication: HIV INFECTION

REACTIONS (3)
  - EPISTAXIS [None]
  - PLATELET COUNT DECREASED [None]
  - PURPURA [None]
